FAERS Safety Report 6792975-0 (Version None)
Quarter: 2010Q2

REPORT INFORMATION
  Report Type: 
  Country: None (occurrence: None)
  Receive Date: 20100624
  Receipt Date: 20081229
  Transmission Date: 20101027
  Serious: Yes (Other)
  Sender: FDA-Public Use
  Company Number: US-PFIZER INC-2008092604

PATIENT
  Age: 33 Year
  Sex: Male
  Weight: 90.718 kg

DRUGS (1)
  1. GEODON [Suspect]
     Dosage: 40 MG, 1X/DAY
     Dates: start: 20081028

REACTIONS (1)
  - PRIAPISM [None]
